FAERS Safety Report 5222038-7 (Version None)
Quarter: 2007Q1

REPORT INFORMATION
  Report Type: 
  Country: None (occurrence: None)
  Receive Date: 20070129
  Receipt Date: 20060412
  Transmission Date: 20070707
  Serious: No
  Sender: FDA-Public Use
  Company Number: US016917

PATIENT
  Age: 35 Year
  Sex: Female
  Weight: 50.9 kg

DRUGS (4)
  1. WELLBUTRIN [Suspect]
     Indication: DRUG USE FOR UNKNOWN INDICATION
     Route: 048
  2. PROVIGIL [Suspect]
     Indication: SLEEP DISORDER
     Dosage: 200MGD UNKNOWN
     Route: 065
  3. PROZAC [Suspect]
     Indication: DRUG USE FOR UNKNOWN INDICATION
     Route: 065
  4. CONCERTA [Suspect]
     Indication: DRUG USE FOR UNKNOWN INDICATION
     Route: 065

REACTIONS (7)
  - AUTOIMMUNE DISORDER [None]
  - COUGH [None]
  - DRUG INTERACTION [None]
  - NIGHT SWEATS [None]
  - POLYARTHRITIS [None]
  - PRURITUS [None]
  - PYREXIA [None]
